FAERS Safety Report 25483582 (Version 1)
Quarter: 2025Q2

REPORT INFORMATION
  Report Type: Spontaneous
  Country: US (occurrence: US)
  Receive Date: 20250626
  Receipt Date: 20250626
  Transmission Date: 20250716
  Serious: Yes (Life-Threatening, Hospitalization, Other)
  Sender: TORRENT PHARMA INC.
  Company Number: US-MLMSERVICE-20250602-PI530122-00050-1

PATIENT
  Age: 38 Year
  Sex: Male
  Weight: 78 kg

DRUGS (3)
  1. FLUOXETINE [Suspect]
     Active Substance: FLUOXETINE HYDROCHLORIDE
     Indication: Product used for unknown indication
     Route: 048
  2. QUETIAPINE [Suspect]
     Active Substance: QUETIAPINE
     Indication: Product used for unknown indication
     Route: 048
  3. AMLODIPINE [Suspect]
     Active Substance: AMLODIPINE BESYLATE
     Indication: Product used for unknown indication
     Route: 048

REACTIONS (6)
  - Intentional overdose [Recovering/Resolving]
  - Shock [Recovering/Resolving]
  - Suicide attempt [Recovering/Resolving]
  - Hypotension [Recovering/Resolving]
  - Blood lactic acid increased [Recovering/Resolving]
  - Vasoplegia syndrome [Recovering/Resolving]
